FAERS Safety Report 6782607-X (Version None)
Quarter: 2010Q2

REPORT INFORMATION
  Report Type: 
  Country: None (occurrence: None)
  Receive Date: 20100621
  Receipt Date: 20100607
  Transmission Date: 20101027
  Serious: Yes (Other)
  Sender: FDA-Public Use
  Company Number: JP-BAYER-201029044GPV

PATIENT
  Age: 33 Year
  Sex: Male

DRUGS (5)
  1. SORAFENIB [Suspect]
     Indication: HEPATIC NEOPLASM MALIGNANT
     Route: 048
     Dates: start: 20090101
  2. SORAFENIB [Suspect]
     Route: 048
     Dates: start: 20090101
  3. SORAFENIB [Suspect]
     Dosage: 400MG/800MG SORAFENIB ON ALTERNATE DAYS
     Route: 048
     Dates: start: 20090101
  4. ANALGESICS [Concomitant]
     Indication: CANCER PAIN
  5. MORPHINE [Concomitant]
     Indication: CANCER PAIN

REACTIONS (1)
  - TUMOUR LYSIS SYNDROME [None]
